FAERS Safety Report 21837946 (Version 1)
Quarter: 2023Q1

REPORT INFORMATION
  Report Type: Spontaneous
  Country: TW (occurrence: TW)
  Receive Date: 20230109
  Receipt Date: 20230109
  Transmission Date: 20230418
  Serious: Yes (Hospitalization, Other)
  Sender: FDA-Public Use
  Company Number: TW-PFIZER INC-PV202300002955

PATIENT
  Sex: Female

DRUGS (1)
  1. XELJANZ XR [Suspect]
     Active Substance: TOFACITINIB CITRATE
     Indication: Rheumatoid arthritis
     Dosage: 11 MG, QD
     Route: 048
     Dates: start: 20200906

REACTIONS (2)
  - Renal cancer [Not Recovered/Not Resolved]
  - Haematuria [Unknown]

NARRATIVE: CASE EVENT DATE: 20221201
